FAERS Safety Report 25854601 (Version 4)
Quarter: 2025Q4

REPORT INFORMATION
  Report Type: Spontaneous
  Country: EU (occurrence: EU)
  Receive Date: 20250927
  Receipt Date: 20251016
  Transmission Date: 20260118
  Serious: Yes (Hospitalization, Other)
  Sender: CELLTRION
  Company Number: EU-BIOCON BIOLOGICS LIMITED-BBL2025005022

PATIENT

DRUGS (4)
  1. ADALIMUMAB [Suspect]
     Active Substance: ADALIMUMAB
     Indication: Ankylosing spondylitis
     Dosage: UNK
     Route: 065
     Dates: start: 202110
  2. ADALIMUMAB [Suspect]
     Active Substance: ADALIMUMAB
     Dosage: BIMONTHLY
     Dates: start: 201106
  3. ADALIMUMAB [Suspect]
     Active Substance: ADALIMUMAB
     Indication: Ankylosing spondylitis
     Dosage: 40 MG BIMONTHLY
     Route: 058
     Dates: start: 201909, end: 202008
  4. ADALIMUMAB [Suspect]
     Active Substance: ADALIMUMAB
     Dosage: 40 MG, Q2WEEKS
     Route: 058
     Dates: start: 201909, end: 202008

REACTIONS (6)
  - Antisynthetase syndrome [Not Recovered/Not Resolved]
  - Antisynthetase syndrome [Unknown]
  - Ankylosing spondylitis [Unknown]
  - Antisynthetase syndrome [Recovered/Resolved]
  - Autoimmune myositis [Recovered/Resolved]
  - Therapeutic product effect incomplete [Unknown]

NARRATIVE: CASE EVENT DATE: 20200801
